FAERS Safety Report 12675107 (Version 2)
Quarter: 2016Q4

REPORT INFORMATION
  Report Type: Spontaneous
  Country: US (occurrence: US)
  Receive Date: 20160823
  Receipt Date: 20161004
  Transmission Date: 20170207
  Serious: Yes (Other)
  Sender: FDA-Public Use
  Company Number: US-009507513-1608USA009024

PATIENT
  Age: 54 Year
  Sex: Male
  Weight: 74.37 kg

DRUGS (7)
  1. BELSOMRA [Suspect]
     Active Substance: SUVOREXANT
     Indication: INSOMNIA
     Dosage: 10 MG, QPM, AT BEDTIME
     Route: 048
     Dates: start: 20160622, end: 20160809
  2. ZOLPIDEM [Concomitant]
     Active Substance: ZOLPIDEM\ZOLPIDEM TARTRATE
     Dosage: UNK
  3. ZOLOFT [Concomitant]
     Active Substance: SERTRALINE HYDROCHLORIDE
     Indication: ANXIETY
  4. KLONOPIN [Concomitant]
     Active Substance: CLONAZEPAM
     Indication: ANXIETY
     Dosage: 2 MG, QD
     Route: 048
     Dates: start: 20130219
  5. ZOLOFT [Concomitant]
     Active Substance: SERTRALINE HYDROCHLORIDE
     Indication: DEPRESSION
     Dosage: 100 MG, BID
     Route: 048
     Dates: start: 20130219
  6. BELSOMRA [Suspect]
     Active Substance: SUVOREXANT
     Dosage: 20 MG, QD
     Route: 048
     Dates: start: 2016, end: 201608
  7. BELSOMRA [Suspect]
     Active Substance: SUVOREXANT
     Dosage: 15 MG, QD
     Route: 048
     Dates: start: 2016, end: 2016

REACTIONS (1)
  - Seizure [Recovered/Resolved]

NARRATIVE: CASE EVENT DATE: 20160622
